FAERS Safety Report 21908699 (Version 1)
Quarter: 2023Q1

REPORT INFORMATION
  Report Type: Spontaneous
  Country: US (occurrence: None)
  Receive Date: 20230124
  Receipt Date: 20230124
  Transmission Date: 20230417
  Serious: No
  Sender: FDA-Public Use
  Company Number: None

PATIENT
  Age: 34 Year
  Sex: Male
  Weight: 121.5 kg

DRUGS (1)
  1. BUPROPION [Suspect]
     Active Substance: BUPROPION
     Indication: Drug therapy enhancement
     Dosage: OTHER QUANTITY : 1 TABLET(S);?
     Route: 048
     Dates: start: 20221226

REACTIONS (5)
  - Therapeutic response decreased [None]
  - Mood swings [None]
  - Irritability [None]
  - Libido decreased [None]
  - Product substitution issue [None]

NARRATIVE: CASE EVENT DATE: 20230101
